FAERS Safety Report 4966546-2 (Version None)
Quarter: 2006Q1

REPORT INFORMATION
  Report Type: 
  Country: None (occurrence: None)
  Receive Date: 20060201
  Receipt Date: 20051004
  Transmission Date: 20060701
  Serious: No
  Sender: FDA-Public Use
  Company Number: 2005PV002826

PATIENT
  Age: 67 Year
  Sex: Female

DRUGS (11)
  1. BYETTA [Suspect]
     Indication: DIABETES MELLITUS NON-INSULIN-DEPENDENT
     Dosage: SEE IMAGE
     Route: 058
     Dates: start: 20050902, end: 20050909
  2. BYETTA [Suspect]
     Indication: DIABETES MELLITUS NON-INSULIN-DEPENDENT
     Dosage: SEE IMAGE
     Route: 058
     Dates: start: 20050910
  3. AVANDIA [Concomitant]
  4. CARDIZEM [Concomitant]
  5. LASIX [Concomitant]
  6. LAMICTAL [Concomitant]
  7. VICODIN [Concomitant]
  8. CRESTOR [Concomitant]
  9. AMBIEN [Concomitant]
  10. SPIRONOLACTONE [Concomitant]
  11. AMANTADINE HCL [Concomitant]

REACTIONS (5)
  - CONSTIPATION [None]
  - DECREASED APPETITE [None]
  - NAUSEA [None]
  - RETCHING [None]
  - WEIGHT DECREASED [None]
